FAERS Safety Report 23606479 (Version 2)
Quarter: 2024Q2

REPORT INFORMATION
  Report Type: Spontaneous
  Country: IE (occurrence: IE)
  Receive Date: 20240307
  Receipt Date: 20240424
  Transmission Date: 20240716
  Serious: Yes (Other)
  Sender: FDA-Public Use
  Company Number: IE-INCYTE CORPORATION-2024IN002375

PATIENT

DRUGS (1)
  1. PEMAZYRE [Suspect]
     Active Substance: PEMIGATINIB
     Indication: Bladder cancer
     Dosage: UNK UNK, QD (ONCE DAILY FOR 14 DAYS FOLLOWED BY A 7 DAY BREAK FOR 4 CYCLES)
     Route: 048
     Dates: start: 20231208, end: 20240216

REACTIONS (3)
  - Bladder cancer [Unknown]
  - Disease progression [Unknown]
  - Off label use [Unknown]

NARRATIVE: CASE EVENT DATE: 20231208
